FAERS Safety Report 6012611-0 (Version None)
Quarter: 2008Q4

REPORT INFORMATION
  Report Type: 
  Country: None (occurrence: None)
  Receive Date: 20081217
  Receipt Date: 20081211
  Transmission Date: 20090506
  Serious: Yes (Death)
  Sender: FDA-Public Use
  Company Number: 2008JP005732

PATIENT
  Age: 22 Year
  Sex: Male

DRUGS (10)
  1. PROGRAF [Suspect]
     Indication: STEM CELL TRANSPLANT
  2. ETOPOSIDE [Suspect]
     Indication: CHEMOTHERAPY
  3. ARA-C (CYTARABINE) FORMULATION UNKNOWN [Concomitant]
  4. METHOTREXATE FORMULATION UNKNOWN [Concomitant]
  5. CIPROFLOXACIN (CIPROFLOXACIN) FORMULATION UNKNOWN [Concomitant]
  6. FLUCONAZOLE (FLUCONAZOLE) FORMULATION UNKNOWN [Concomitant]
  7. SULFAMETHOXAZOLE AND TRIMETHOPRIM (SULFAMETHOXAZOLE, TRIMETHOPRIM) TAB [Concomitant]
  8. FLUDARABINE (FLUDARABINE) FORMULATION UNKNOWN [Concomitant]
  9. MELPHALAN (MELPHALAN) FORMULATION UNKNOWN [Concomitant]
  10. FLAG-IDA FORMULATION UNKNOWN [Concomitant]

REACTIONS (4)
  - ACUTE LYMPHOCYTIC LEUKAEMIA RECURRENT [None]
  - PERICARDIAL EFFUSION [None]
  - PLEURAL EFFUSION [None]
  - PSEUDOMONAL SEPSIS [None]
